FAERS Safety Report 7933975-4 (Version None)
Quarter: 2011Q4

REPORT INFORMATION
  Report Type: 
  Country: None (occurrence: None)
  Receive Date: 20111122
  Receipt Date: 20100115
  Transmission Date: 20120403
  Serious: Yes (Hospitalization)
  Sender: FDA-Public Use
  Company Number: PHHY2010TW17361

PATIENT
  Sex: Male

DRUGS (4)
  1. SUTENT [Suspect]
     Indication: GASTROINTESTINAL STROMAL TUMOUR
     Dates: start: 20110401
  2. GLEEVEC [Suspect]
     Indication: GASTROINTESTINAL STROMAL TUMOUR
     Dosage: 400 (UNITS UNKNOWN)
     Route: 048
  3. GLEEVEC [Suspect]
     Dosage: 600 MG, UNK
     Route: 048
     Dates: start: 20101101, end: 20110401
  4. GLEEVEC [Suspect]
     Dosage: 800 MG PER DAY
     Route: 048

REACTIONS (13)
  - NEOPLASM MALIGNANT [None]
  - RHINITIS [None]
  - DISCOMFORT [None]
  - METASTASES TO LARGE INTESTINE [None]
  - PRURITUS [None]
  - VASCULAR FRAGILITY [None]
  - GASTROINTESTINAL STROMAL TUMOUR [None]
  - RASH [None]
  - ANGIOPATHY [None]
  - ABDOMINAL ADHESIONS [None]
  - SKIN DISCOLOURATION [None]
  - DEPRESSION [None]
  - DIARRHOEA [None]
